FAERS Safety Report 9462735 (Version 1)
Quarter: 2013Q3

REPORT INFORMATION
  Report Type: Spontaneous
  Country: SI (occurrence: SI)
  Receive Date: 20130816
  Receipt Date: 20130816
  Transmission Date: 20140515
  Serious: Yes (Life-Threatening, Hospitalization, Other)
  Sender: FDA-Public Use
  Company Number: SI-ROXANE LABORATORIES, INC.-2013-RO-01335RO

PATIENT
  Age: 58 Year
  Sex: Female

DRUGS (6)
  1. METHOTREXATE [Suspect]
     Indication: RHEUMATOID ARTHRITIS
  2. CALCIUM CARBONATE [Suspect]
  3. FOLIC ACID [Suspect]
  4. ENALAPRIL [Suspect]
  5. CALCITRIOL [Suspect]
  6. METILPREDNIZOLON [Suspect]

REACTIONS (5)
  - Pancytopenia [Recovered/Resolved]
  - Stomatitis [Unknown]
  - Renal failure [Unknown]
  - Staphylococcal infection [Unknown]
  - Secondary amyloidosis [Unknown]
